FAERS Safety Report 8365673-X (Version None)
Quarter: 2012Q2

REPORT INFORMATION
  Report Type: 
  Country: None (occurrence: None)
  Receive Date: 20120516
  Receipt Date: 20120509
  Transmission Date: 20120825
  Serious: Yes (Hospitalization)
  Sender: FDA-Public Use
  Company Number: US-ABBOTT-12P-163-0933886-00

PATIENT
  Sex: Male
  Weight: 50.848 kg

DRUGS (3)
  1. HUMIRA [Suspect]
     Dates: start: 20110701, end: 20111001
  2. HUMIRA [Suspect]
     Dates: start: 20111101
  3. HUMIRA [Suspect]
     Indication: PSORIASIS
     Dates: start: 20090101, end: 20110601

REACTIONS (2)
  - PROSTATE CANCER [None]
  - DEFORMITY THORAX [None]
